FAERS Safety Report 7266252-8 (Version None)
Quarter: 2011Q1

REPORT INFORMATION
  Report Type: 
  Country: None (occurrence: None)
  Receive Date: 20110131
  Receipt Date: 20101215
  Transmission Date: 20110831
  Serious: Yes (Hospitalization, Other)
  Sender: FDA-Public Use
  Company Number: US-BAYER-201020778NA

PATIENT
  Sex: Female
  Weight: 86 kg

DRUGS (4)
  1. CYMBALTA [Concomitant]
     Dosage: 30 MG, UNK
  2. ALEVE [Concomitant]
  3. YAZ [Suspect]
     Indication: PREMENSTRUAL SYNDROME
     Dosage: UNK UNK, UNK
     Route: 048
     Dates: start: 20070410, end: 20070428
  4. NAPROXEN [Concomitant]

REACTIONS (4)
  - CHEST PAIN [None]
  - DYSPNOEA [None]
  - MENTAL DISORDER [None]
  - PULMONARY EMBOLISM [None]
